FAERS Safety Report 5570775-7 (Version None)
Quarter: 2007Q4

REPORT INFORMATION
  Report Type: 
  Country: None (occurrence: None)
  Receive Date: 20071221
  Receipt Date: 20071210
  Transmission Date: 20080405
  Serious: Yes (Death, Hospitalization, Other)
  Sender: FDA-Public Use
  Company Number: US-ELI_LILLY_AND_COMPANY-US200711005718

PATIENT
  Age: 82 Year
  Sex: Female

DRUGS (1)
  1. FORTEO [Suspect]
     Indication: OSTEOPOROSIS
     Dosage: UNK, UNK
     Dates: start: 20070701

REACTIONS (6)
  - DECREASED APPETITE [None]
  - DEHYDRATION [None]
  - MULTIPLE FRACTURES [None]
  - OSTEOPOROSIS [None]
  - PULMONARY HYPERTENSION [None]
  - WEIGHT DECREASED [None]
